FAERS Safety Report 5630285-5 (Version None)
Quarter: 2008Q1

REPORT INFORMATION
  Report Type: 
  Country: None (occurrence: None)
  Receive Date: 20080219
  Receipt Date: 20080211
  Transmission Date: 20080703
  Serious: Yes (Hospitalization, Other)
  Sender: FDA-Public Use
  Company Number: US-BAYER-200715154NA

PATIENT
  Age: 48 Year
  Sex: Female
  Weight: 77 kg

DRUGS (4)
  1. AVELOX [Suspect]
     Indication: UPPER RESPIRATORY TRACT INFECTION
     Route: 048
     Dates: start: 20071001
  2. AVELOX [Suspect]
     Dosage: TOTAL DAILY DOSE: 400 MG  UNIT DOSE: 400 MG
     Route: 048
     Dates: start: 20071129
  3. ZOLOFT [Concomitant]
     Indication: DEPRESSION
     Dosage: TOTAL DAILY DOSE: 100 MG
  4. LUNESTA [Concomitant]
     Dosage: TOTAL DAILY DOSE: 3 MG

REACTIONS (1)
  - ANAPHYLACTIC SHOCK [None]
